FAERS Safety Report 9606921 (Version 5)
Quarter: 2013Q4

REPORT INFORMATION
  Report Type: Spontaneous
  Country: FR (occurrence: FR)
  Receive Date: 20131008
  Receipt Date: 20131205
  Transmission Date: 20140711
  Serious: Yes (Death, Other)
  Sender: FDA-Public Use
  Company Number: FR-RB-059213-13

PATIENT
  Age: 5 Year
  Sex: Female

DRUGS (1)
  1. SUBUTEX [Suspect]
     Indication: ACCIDENTAL EXPOSURE TO PRODUCT BY CHILD
     Dosage: DOSING DETAILS UNKNOWN
     Route: 065
     Dates: start: 201305, end: 201305

REACTIONS (3)
  - Accidental exposure to product by child [Fatal]
  - Vomiting [Fatal]
  - Aspiration [Fatal]
